FAERS Safety Report 18323496 (Version 3)
Quarter: 2020Q4

REPORT INFORMATION
  Report Type: Report from Study
  Country: US (occurrence: US)
  Receive Date: 20200928
  Receipt Date: 20201107
  Transmission Date: 20210113
  Serious: No
  Sender: FDA-Public Use
  Company Number: NVSC2020US262626

PATIENT
  Sex: Female

DRUGS (2)
  1. COSENTYX [Suspect]
     Active Substance: SECUKINUMAB
     Indication: PSORIASIS
     Dosage: 300 MG, Q4W
     Route: 058
     Dates: start: 20200819
  2. COSENTYX [Suspect]
     Active Substance: SECUKINUMAB
     Dosage: 300 MG (WEEKS 0, 1, 2, 3, AND 4. THEN ONCE EVERY 4 WEEKS THEREAFTER)
     Route: 058

REACTIONS (3)
  - Drug ineffective [Unknown]
  - Psoriasis [Unknown]
  - Rash [Unknown]
